FAERS Safety Report 15063923 (Version 1)
Quarter: 2018Q2

REPORT INFORMATION
  Report Type: Spontaneous
  Country: US (occurrence: US)
  Receive Date: 20180625
  Receipt Date: 20180625
  Transmission Date: 20180711
  Serious: No
  Sender: FDA-Public Use
  Company Number: US-AMGEN-USASP2016061345

PATIENT
  Sex: Female

DRUGS (1)
  1. REPATHA [Suspect]
     Active Substance: EVOLOCUMAB
     Indication: CARDIOVASCULAR DISORDER
     Dosage: 140 MG, Q2WK
     Route: 065

REACTIONS (11)
  - Off label use [Unknown]
  - Musculoskeletal pain [Unknown]
  - Groin pain [Unknown]
  - Headache [Unknown]
  - Pain [Unknown]
  - Feeling abnormal [Unknown]
  - Arthralgia [Unknown]
  - Flushing [Unknown]
  - Low density lipoprotein decreased [Recovering/Resolving]
  - Pain in extremity [Unknown]
  - Chest pain [Unknown]
